FAERS Safety Report 6709177-6 (Version None)
Quarter: 2010Q2

REPORT INFORMATION
  Report Type: 
  Country: None (occurrence: None)
  Receive Date: 20100504
  Receipt Date: 20100428
  Transmission Date: 20101027
  Serious: Yes (Death, Other)
  Sender: FDA-Public Use
  Company Number: ES-BAYER-201023803GPV

PATIENT

DRUGS (3)
  1. SORAFENIB [Suspect]
     Indication: METASTATIC RENAL CELL CARCINOMA
     Dosage: TOTAL DAILY DOSE: 800 MG  UNIT DOSE: 200 MG
     Route: 048
  2. GEMCITABINE HCL [Suspect]
     Indication: METASTATIC RENAL CELL CARCINOMA
     Dosage: OVER 30 MIN ON DAYS 1 AND 8 FOR SIX CYCLES
     Route: 042
  3. METRONOMIC CAPECITABINE [Suspect]
     Indication: METASTATIC RENAL CELL CARCINOMA
     Dosage: EVERY 12 H FROM DAY 1 TO DAY 14 FOR SIX CYCLES
     Route: 048

REACTIONS (2)
  - DYSPNOEA [None]
  - PULMONARY EMBOLISM [None]
